FAERS Safety Report 25158067 (Version 2)
Quarter: 2025Q2

REPORT INFORMATION
  Report Type: Report from Study
  Country: US (occurrence: US)
  Receive Date: 20250404
  Receipt Date: 20250407
  Transmission Date: 20250717
  Serious: Yes (Life-Threatening, Hospitalization, Disabling, Other)
  Sender: BRISTOL MYERS SQUIBB
  Company Number: US-BRISTOL-MYERS SQUIBB COMPANY-2025-047652

PATIENT
  Sex: Male
  Weight: 95 kg

DRUGS (2)
  1. ELIQUIS [Suspect]
     Active Substance: APIXABAN
     Indication: Product used for unknown indication
  2. PLAVIX [Concomitant]
     Active Substance: CLOPIDOGREL BISULFATE
     Indication: Product used for unknown indication

REACTIONS (20)
  - Cardiac valve disease [Unknown]
  - Stress [Unknown]
  - Arthritis [Unknown]
  - Gastrooesophageal reflux disease [Unknown]
  - Sleep apnoea syndrome [Unknown]
  - Bradycardia [Unknown]
  - Tachycardia [Unknown]
  - Bundle branch block [Unknown]
  - Syncope [Unknown]
  - Conduction disorder [Unknown]
  - Cardiac arrest [Recovered/Resolved]
  - Atrial flutter [Unknown]
  - Joint injury [Unknown]
  - Sports injury [Unknown]
  - Gastrointestinal disorder [Unknown]
  - Duodenal ulcer [Unknown]
  - Blood testosterone decreased [Unknown]
  - Mobility decreased [Unknown]
  - Injury [Unknown]
  - Arthropathy [Unknown]

NARRATIVE: CASE EVENT DATE: 20250201
